FAERS Safety Report 23288919 (Version 1)
Quarter: 2023Q4

REPORT INFORMATION
  Report Type: Spontaneous
  Country: US (occurrence: None)
  Receive Date: 20231211
  Receipt Date: 20231211
  Transmission Date: 20240110
  Serious: Yes (Other)
  Sender: FDA-Public Use
  Company Number: None

PATIENT
  Age: 73 Year
  Sex: Female

DRUGS (11)
  1. PRALUENT [Suspect]
     Active Substance: ALIROCUMAB
     Indication: Hyperlipidaemia
     Dosage: OTHER FREQUENCY : Q 2 WEEKS;?
     Route: 058
     Dates: start: 20230125, end: 20231017
  2. VASCEPA [Concomitant]
     Active Substance: ICOSAPENT ETHYL
  3. TOPROL XL [Concomitant]
     Active Substance: METOPROLOL SUCCINATE
  4. BRILINTA [Concomitant]
     Active Substance: TICAGRELOR
  5. ASPIRIN [Concomitant]
     Active Substance: ASPIRIN
  6. LOSARTAN [Concomitant]
     Active Substance: LOSARTAN
  7. AMLODIPINE [Concomitant]
     Active Substance: AMLODIPINE BESYLATE
  8. ALPHA LIPOIC ACID [Concomitant]
     Active Substance: .ALPHA.-LIPOIC ACID
  9. HUMULIN R [Concomitant]
     Active Substance: INSULIN HUMAN
  10. ALBUTEROL [Concomitant]
     Active Substance: ALBUTEROL
  11. XANAX [Concomitant]
     Active Substance: ALPRAZOLAM

REACTIONS (1)
  - Diarrhoea [None]

NARRATIVE: CASE EVENT DATE: 20230919
